FAERS Safety Report 8074304-8 (Version None)
Quarter: 2012Q1

REPORT INFORMATION
  Report Type: 
  Country: None (occurrence: None)
  Receive Date: 20120120
  Receipt Date: 20120106
  Transmission Date: 20120608
  Serious: Yes (Other)
  Sender: FDA-Public Use
  Company Number: AUR-APL-2012-00114

PATIENT
  Age: 61 Year
  Sex: Male
  Weight: 59.86 kg

DRUGS (6)
  1. LIPITOR [Concomitant]
  2. CEFUROXIME [Suspect]
     Indication: BRONCHITIS
     Dosage: 1000 MG (500 MG, 2 IN 1 D)
     Dates: start: 20111229
  3. MIRTAZAPINE [Concomitant]
  4. CHANTIX [Suspect]
     Indication: SMOKING CESSATION THERAPY
     Dosage: 0.5 MG (0.5 MG, 1 IN 1 D), ORAL
     Route: 048
     Dates: start: 20111230
  5. LISINOPRIL [Concomitant]
  6. LORAZEPAM [Concomitant]

REACTIONS (9)
  - ANXIETY [None]
  - AMNESIA [None]
  - CONDITION AGGRAVATED [None]
  - DEPRESSION [None]
  - AGITATION [None]
  - MOOD SWINGS [None]
  - INSOMNIA [None]
  - ABDOMINAL DISCOMFORT [None]
  - FEELING ABNORMAL [None]
